FAERS Safety Report 23326596 (Version 1)
Quarter: 2023Q4

REPORT INFORMATION
  Report Type: Spontaneous
  Country: PL (occurrence: PL)
  Receive Date: 20231221
  Receipt Date: 20231221
  Transmission Date: 20240110
  Serious: Yes (Hospitalization)
  Sender: FDA-Public Use
  Company Number: PL-ACELLA PHARMACEUTICALS, LLC-2023ALO00094

PATIENT
  Age: 66 Year
  Sex: Male

DRUGS (1)
  1. CARBIDOPA LEVODOPA [Suspect]
     Active Substance: CARBIDOPA\LEVODOPA
     Indication: Parkinson^s disease
     Dosage: 1720 MG (LEDD); LCIG

REACTIONS (1)
  - Demyelinating polyneuropathy [Recovering/Resolving]
